FAERS Safety Report 8323026-4 (Version None)
Quarter: 2012Q2

REPORT INFORMATION
  Report Type: 
  Country: None (occurrence: None)
  Receive Date: 20120430
  Receipt Date: 20120419
  Transmission Date: 20120825
  Serious: Yes (Other)
  Sender: FDA-Public Use
  Company Number: US-ASTRAZENECA-2012SE25971

PATIENT
  Age: 48 Year
  Sex: Male

DRUGS (4)
  1. NEXIUM [Suspect]
     Route: 048
     Dates: end: 20070101
  2. PAIN MEDICATION [Concomitant]
  3. PREDNISONE [Concomitant]
  4. ZANTAC [Concomitant]

REACTIONS (8)
  - BACK INJURY [None]
  - GASTROOESOPHAGEAL REFLUX DISEASE [None]
  - ERUCTATION [None]
  - SPINAL DISORDER [None]
  - MYOCARDIAL INFARCTION [None]
  - INTENTIONAL DRUG MISUSE [None]
  - RENAL FAILURE [None]
  - BODY HEIGHT DECREASED [None]
